FAERS Safety Report 5064039-8 (Version None)
Quarter: 2006Q3

REPORT INFORMATION
  Report Type: 
  Country: None (occurrence: None)
  Receive Date: 20060706
  Receipt Date: 20060427
  Transmission Date: 20061208
  Serious: No
  Sender: FDA-Public Use
  Company Number: 200612685BWH

PATIENT

DRUGS (1)
  1. LEVITRA [Suspect]

REACTIONS (1)
  - TACHYPHYLAXIS [None]
